FAERS Safety Report 21130230 (Version 4)
Quarter: 2022Q3

REPORT INFORMATION
  Report Type: Spontaneous
  Country: US (occurrence: US)
  Receive Date: 20220726
  Receipt Date: 20220901
  Transmission Date: 20221026
  Serious: Yes (Other)
  Sender: FDA-Public Use
  Company Number: US-ORGANON-O2207USA001857

PATIENT
  Weight: 66.213 kg

DRUGS (1)
  1. NEXPLANON [Suspect]
     Active Substance: ETONOGESTREL
     Dosage: 1 IMPLANT OF 68MG EVERY 3 YEARS IN LEFT UPPER ARM
     Route: 059
     Dates: start: 20220316, end: 2022

REACTIONS (5)
  - Device expulsion [Recovered/Resolved]
  - Implant site infection [Unknown]
  - Implant site swelling [Unknown]
  - Complication associated with device [Recovered/Resolved]
  - Wrong technique in device usage process [Unknown]

NARRATIVE: CASE EVENT DATE: 20220101
